FAERS Safety Report 23552947 (Version 4)
Quarter: 2024Q2

REPORT INFORMATION
  Report Type: Report from Study
  Country: US (occurrence: US)
  Receive Date: 20240222
  Receipt Date: 20240522
  Transmission Date: 20240716
  Serious: Yes (Other)
  Sender: FDA-Public Use
  Company Number: US-002147023-NVSC2024US037226

PATIENT
  Age: 33 Year
  Sex: Female

DRUGS (2)
  1. KESIMPTA [Suspect]
     Active Substance: OFATUMUMAB
     Indication: Relapsing multiple sclerosis
     Dosage: 20 MG, QMO
     Route: 058
     Dates: start: 20231018
  2. VITAMIN D [Concomitant]
     Active Substance: VITAMIN D NOS
     Indication: Product used for unknown indication
     Dosage: UNK
     Route: 065

REACTIONS (21)
  - Optic neuritis [Unknown]
  - Ocular discomfort [Unknown]
  - Diplopia [Unknown]
  - Vision blurred [Unknown]
  - Dyschromatopsia [Unknown]
  - Migraine [Unknown]
  - Illness [Unknown]
  - Anxiety [Unknown]
  - Depression [Unknown]
  - Brain fog [Unknown]
  - Memory impairment [Unknown]
  - Dyspnoea [Unknown]
  - Dizziness postural [Unknown]
  - Infection [Unknown]
  - Pain [Unknown]
  - Asthenia [Unknown]
  - Sinusitis [Unknown]
  - Respiratory tract congestion [Unknown]
  - Product packaging issue [Unknown]
  - Product container seal issue [Unknown]
  - Product physical issue [Unknown]

NARRATIVE: CASE EVENT DATE: 20240216
